FAERS Safety Report 24885994 (Version 1)
Quarter: 2025Q1

REPORT INFORMATION
  Report Type: Spontaneous
  Country: IT (occurrence: IT)
  Receive Date: 20250125
  Receipt Date: 20250125
  Transmission Date: 20250409
  Serious: Yes (Disabling, Other)
  Sender: ACCORD
  Company Number: IT-MLMSERVICE-20250109-PI331897-00327-2

PATIENT
  Age: 28 Year
  Sex: Male

DRUGS (15)
  1. CLOBAZAM [Interacting]
     Active Substance: CLOBAZAM
     Indication: Tonic convulsion
  2. CENOBAMATE [Interacting]
     Active Substance: CENOBAMATE
     Indication: Tonic convulsion
     Dosage: INITIATED WITH A 24-WEEK SLOW TITRATION
  3. VALPROIC ACID [Interacting]
     Active Substance: VALPROIC ACID
     Indication: Tonic convulsion
  4. LAMOTRIGINE [Interacting]
     Active Substance: LAMOTRIGINE
     Indication: Tonic convulsion
  5. CENOBAMATE [Interacting]
     Active Substance: CENOBAMATE
     Indication: Tonic convulsion
     Dosage: INCREASED CENOBAMATE DOSE
  6. CENOBAMATE [Interacting]
     Active Substance: CENOBAMATE
     Indication: Petit mal epilepsy
     Dosage: INITIATED WITH A 24-WEEK SLOW TITRATION
  7. LAMOTRIGINE [Interacting]
     Active Substance: LAMOTRIGINE
     Indication: Tonic convulsion
  8. LAMOTRIGINE [Interacting]
     Active Substance: LAMOTRIGINE
     Indication: Petit mal epilepsy
  9. CLOBAZAM [Interacting]
     Active Substance: CLOBAZAM
     Indication: Tonic convulsion
  10. CLOBAZAM [Interacting]
     Active Substance: CLOBAZAM
     Indication: Myoclonic epilepsy
  11. CENOBAMATE [Interacting]
     Active Substance: CENOBAMATE
     Indication: Tonic convulsion
  12. CLOBAZAM [Interacting]
     Active Substance: CLOBAZAM
     Indication: Generalised tonic-clonic seizure
  13. CLOBAZAM [Interacting]
     Active Substance: CLOBAZAM
     Indication: Petit mal epilepsy
  14. VALPROIC ACID [Interacting]
     Active Substance: VALPROIC ACID
     Indication: Tonic convulsion
  15. VALPROIC ACID [Interacting]
     Active Substance: VALPROIC ACID
     Indication: Petit mal epilepsy

REACTIONS (6)
  - Somnolence [Unknown]
  - Brain fog [Unknown]
  - Disorientation [Unknown]
  - Ammonia increased [Unknown]
  - Drug interaction [Unknown]
  - Gait disturbance [Unknown]
